FAERS Safety Report 5688012-1 (Version None)
Quarter: 2008Q1

REPORT INFORMATION
  Report Type: 
  Country: None (occurrence: None)
  Receive Date: 20080328
  Receipt Date: 20080318
  Transmission Date: 20080703
  Serious: Yes (Other)
  Sender: FDA-Public Use
  Company Number: US-BAYER-200816495NA

PATIENT
  Age: 52 Year
  Sex: Female

DRUGS (4)
  1. AVELOX [Suspect]
     Indication: SINUSITIS
     Dosage: TOTAL DAILY DOSE: 400 MG  UNIT DOSE: 400 MG
     Route: 048
     Dates: start: 20080307, end: 20080307
  2. SEMPREX-D [Concomitant]
  3. NASONEX [Concomitant]
  4. AVALIDE [Concomitant]

REACTIONS (10)
  - ABDOMINAL PAIN [None]
  - ANAPHYLACTIC REACTION [None]
  - CHILLS [None]
  - DIZZINESS [None]
  - DYSPNOEA [None]
  - HYPERVENTILATION [None]
  - PRURITUS GENERALISED [None]
  - RASH ERYTHEMATOUS [None]
  - THROAT IRRITATION [None]
  - WHEEZING [None]
